FAERS Safety Report 4565261-7 (Version None)
Quarter: 2005Q1

REPORT INFORMATION
  Report Type: 
  Country: None (occurrence: None)
  Receive Date: 20050131
  Receipt Date: 20041202
  Transmission Date: 20050727
  Serious: Yes (Other)
  Sender: FDA-Public Use
  Company Number: CH-ROCHE-392773

PATIENT
  Age: 21 Year
  Sex: Female
  Weight: 55 kg

DRUGS (11)
  1. ROCEPHIN [Suspect]
     Indication: BACTERIAL INFECTION
     Dosage: FORMULATION REPORTED AS VIALS.
     Route: 040
     Dates: start: 20040706, end: 20040727
  2. PHENYTOIN [Suspect]
     Route: 048
     Dates: start: 20040707, end: 20040728
  3. NOVALGIN [Suspect]
     Route: 048
     Dates: start: 20040706, end: 20040727
  4. ORFIRIL [Suspect]
     Route: 048
     Dates: start: 20040709, end: 20040728
  5. PENICILIN G [Concomitant]
     Indication: BACTERIAL INFECTION
     Route: 040
     Dates: start: 20040711, end: 20040712
  6. DEXAMETHASONE [Concomitant]
     Route: 040
     Dates: start: 20040706, end: 20040712
  7. RIMACTANE [Concomitant]
     Indication: BACTERIAL INFECTION
     Dosage: FORMULATION REPORTED AS VIALS.
     Route: 040
     Dates: start: 20040706, end: 20040710
  8. PERFALGAN [Concomitant]
     Route: 040
     Dates: start: 20040708
  9. FRAXIPARINE [Concomitant]
     Dosage: FORMULATION REPORTED AS VIALS.
     Route: 058
     Dates: start: 20040707
  10. MANNITOL [Concomitant]
     Route: 041
     Dates: start: 20040708, end: 20040712
  11. URBANYL [Concomitant]
     Route: 048
     Dates: start: 20040720

REACTIONS (7)
  - EXANTHEM [None]
  - LYMPHADENITIS [None]
  - LYMPHADENOPATHY [None]
  - NEUTROPENIA [None]
  - PYREXIA [None]
  - RASH GENERALISED [None]
  - THROMBOCYTOPENIA [None]
